FAERS Safety Report 5609272-9 (Version None)
Quarter: 2008Q1

REPORT INFORMATION
  Report Type: 
  Country: None (occurrence: None)
  Receive Date: 20080131
  Receipt Date: 20080124
  Transmission Date: 20080703
  Serious: Yes (Hospitalization)
  Sender: FDA-Public Use
  Company Number: CZ-ABBOTT-08P-217-0434966-00

PATIENT
  Sex: Female

DRUGS (12)
  1. HUMIRA [Suspect]
     Indication: RHEUMATOID ARTHRITIS
     Route: 058
     Dates: start: 20041020
  2. METHYLPREDNISOLONE [Concomitant]
     Indication: DRUG USE FOR UNKNOWN INDICATION
  3. OMEPRAZOLE [Concomitant]
     Indication: DRUG USE FOR UNKNOWN INDICATION
  4. CELECOXIB [Concomitant]
     Indication: DRUG USE FOR UNKNOWN INDICATION
  5. RILMENIDINE [Concomitant]
     Indication: DRUG USE FOR UNKNOWN INDICATION
  6. TENORETIC 100 [Concomitant]
     Indication: DRUG USE FOR UNKNOWN INDICATION
  7. TORVACARD [Concomitant]
     Indication: DRUG USE FOR UNKNOWN INDICATION
  8. CAPIVEN [Concomitant]
     Indication: DRUG USE FOR UNKNOWN INDICATION
  9. TRAMADOL HCL [Concomitant]
     Indication: DRUG USE FOR UNKNOWN INDICATION
  10. HEPARIN [Concomitant]
     Indication: DRUG USE FOR UNKNOWN INDICATION
  11. CALCIFEROL FORTE [Concomitant]
     Indication: DRUG USE FOR UNKNOWN INDICATION
  12. MIACALCIN [Concomitant]
     Indication: DRUG USE FOR UNKNOWN INDICATION

REACTIONS (4)
  - CERVICAL MYELOPATHY [None]
  - INTERVERTEBRAL DISC DISORDER [None]
  - INTERVERTEBRAL DISC DISPLACEMENT [None]
  - INTERVERTEBRAL DISC PROTRUSION [None]
